FAERS Safety Report 8486262-2 (Version None)
Quarter: 2012Q3

REPORT INFORMATION
  Report Type: 
  Country: None (occurrence: None)
  Receive Date: 20120703
  Receipt Date: 20120702
  Transmission Date: 20120928
  Serious: Yes (Death)
  Sender: FDA-Public Use
  Company Number: US-PFIZER INC-2012101076

PATIENT
  Sex: Male

DRUGS (19)
  1. CELECOXIB [Concomitant]
     Indication: ARTHRALGIA
     Dosage: 200 MG, 1X/DAY
     Route: 048
  2. LIPITOR [Suspect]
     Indication: BLOOD CHOLESTEROL INCREASED
     Dosage: 5 MG, 1X/DAY (10 MG TAB, TAKE 0.5 TAB AT BEDTIME)
  3. ZOLOFT [Suspect]
     Dosage: 25 MG, 1X/DAY
     Route: 048
  4. NORVASC [Suspect]
     Dosage: UNK
  5. CLOPIDOGREL BISULFATE [Concomitant]
     Dosage: 75 MG, 1X/DAY
     Route: 048
  6. FERROUS SULFATE [Concomitant]
     Dosage: 325 MG, 1X/DAY
     Route: 048
  7. HYDROCHLOROTHIAZIDE [Concomitant]
     Dosage: 12.5 MG, 1X/DAY
     Route: 048
  8. METOPROLOL TARTRATE [Concomitant]
     Dosage: 25 MG, 2X/DAY
     Route: 048
  9. DIPHENHYDRAMINE [Concomitant]
     Dosage: 50 MG, AT BEDTIME
     Route: 048
  10. ERGOCALCIFEROL [Concomitant]
     Indication: VITAMIN D DEFICIENCY
     Dosage: 5000 IU, EVERY 7 DAYS
  11. HYDROCORTISONE ACETATE [Concomitant]
     Dosage: 1 %, 2X/DAY TO AFFECTED AREA
  12. LOSARTAN POTASSIUM [Concomitant]
     Indication: HYPERTENSION
     Dosage: 100 MG, 1X/DAY
     Route: 048
  13. RANITIDINE [Concomitant]
     Dosage: 150 MG, 2X/DAY
     Route: 048
  14. WARFARIN SODIUM [Concomitant]
     Dosage: 6 MG, EVERY EVENING
     Route: 048
  15. HYDROCODONE BITARTRATE + ACETAMINOPHEN [Concomitant]
     Dosage: HYDROCODONE 5MG/ACETAMINOPHEN 500MG, 1 TAB EVERY 6 HOURS AS NEEDED
     Route: 048
  16. INSULIN ISOPHANE, HUMAN BIOSYNTHETIC [Concomitant]
     Indication: DIABETES MELLITUS
     Dosage: 50 UNITS WITH BREAKFAST, 25 UNITS WITH DINNER
  17. ALPRAZOLAM [Concomitant]
     Indication: ANXIETY
     Dosage: 1 DF, 2 TIMES DAILY AS NEEDED
     Route: 048
  18. ASPIRIN [Concomitant]
     Dosage: 81 MG, 1X/DAY
     Route: 048
  19. NITROGLYCERIN [Concomitant]
     Indication: ANGINA PECTORIS
     Dosage: 0.4 MG, EVERY 5 MINUTES AS NEEDED
     Route: 060

REACTIONS (1)
  - TYPE 2 DIABETES MELLITUS [None]
